FAERS Safety Report 6710759-6 (Version None)
Quarter: 2010Q2

REPORT INFORMATION
  Report Type: 
  Country: None (occurrence: None)
  Receive Date: 20100504
  Receipt Date: 20100504
  Transmission Date: 20101027
  Serious: Yes (Hospitalization)
  Sender: FDA-Public Use
  Company Number: None

PATIENT
  Sex: Female
  Weight: 7.2576 kg

DRUGS (1)
  1. CHILDREN'S BENADRYL ALLERGY [Suspect]
     Indication: HYPERSENSITIVITY
     Dosage: 1/4 TEASPOON 1 TIME PO
     Route: 048
     Dates: start: 20100501, end: 20100501

REACTIONS (2)
  - HYPOTHERMIA [None]
  - THERMOMETRY ABNORMAL [None]
